FAERS Safety Report 23998345 (Version 2)
Quarter: 2024Q3

REPORT INFORMATION
  Report Type: Report from Study
  Country: US (occurrence: US)
  Receive Date: 20240621
  Receipt Date: 20240812
  Transmission Date: 20241017
  Serious: Yes (Other)
  Sender: AMGEN
  Company Number: US-HORIZON THERAPEUTICS-HZN-2021-003001

PATIENT
  Age: 70 Year
  Sex: Female
  Weight: 55.782 kg

DRUGS (12)
  1. TEPEZZA [Suspect]
     Active Substance: TEPROTUMUMAB-TRBW
     Indication: Endocrine ophthalmopathy
     Dosage: UNK, FIRST INFUSION
     Route: 042
     Dates: start: 20210505
  2. TEPEZZA [Suspect]
     Active Substance: TEPROTUMUMAB-TRBW
     Indication: Toxic goitre
     Dosage: UNK, (SECOND INFUSION)
     Route: 042
     Dates: start: 20210526
  3. TEPEZZA [Suspect]
     Active Substance: TEPROTUMUMAB-TRBW
     Dosage: UNK (THIRD INFUSION)
     Route: 042
     Dates: start: 20210616
  4. TEPEZZA [Suspect]
     Active Substance: TEPROTUMUMAB-TRBW
     Dosage: UNK, SEVENTH INFUSION
     Route: 042
     Dates: start: 2021
  5. TEPEZZA [Suspect]
     Active Substance: TEPROTUMUMAB-TRBW
     Dosage: UNK, EIGHTH INFUSION
     Route: 042
     Dates: start: 20210930, end: 20210930
  6. CEQUA [Concomitant]
     Active Substance: CYCLOSPORINE
  7. MIEBO [Concomitant]
     Active Substance: PERFLUOROHEXYLOCTANE
  8. TIMOPTIC [Concomitant]
     Active Substance: TIMOLOL MALEATE
  9. TYRVAYA [Concomitant]
     Active Substance: VARENICLINE TARTRATE
  10. METHYLTESTOSTERONE [Concomitant]
     Active Substance: METHYLTESTOSTERONE
  11. PROGESTERONE [Concomitant]
     Active Substance: PROGESTERONE
  12. SYNTHROID [Concomitant]
     Active Substance: LEVOTHYROXINE SODIUM

REACTIONS (17)
  - Deafness transitory [Recovered/Resolved]
  - Deafness neurosensory [Unknown]
  - Myalgia [Recovered/Resolved]
  - Somnolence [Unknown]
  - Vertigo [Unknown]
  - Visual impairment [Unknown]
  - Alopecia [Recovered/Resolved]
  - Nausea [Not Recovered/Not Resolved]
  - Incorrect dose administered [Unknown]
  - Exposure via skin contact [Unknown]
  - Accidental exposure to product [Unknown]
  - Diplopia [Not Recovered/Not Resolved]
  - Lacrimation increased [Not Recovered/Not Resolved]
  - Product administration error [Unknown]
  - Dry eye [Unknown]
  - Eyelid retraction [Unknown]
  - Lagophthalmos [Unknown]

NARRATIVE: CASE EVENT DATE: 20210101
